FAERS Safety Report 5188090-2 (Version None)
Quarter: 2006Q4

REPORT INFORMATION
  Report Type: 
  Country: None (occurrence: None)
  Receive Date: 20061221
  Receipt Date: 20061214
  Transmission Date: 20070319
  Serious: Yes (Disabling, Other)
  Sender: FDA-Public Use
  Company Number: US-PURDUE-USA_2006_0025978

PATIENT
  Age: 20 Year
  Sex: Female

DRUGS (2)
  1. OXYCONTIN [Suspect]
     Indication: DRUG ABUSER
     Dosage: UNK UNK, UNK
     Route: 045
  2. MARIJUANA [Suspect]
     Indication: DRUG ABUSER
     Dosage: UNK UNK, UNK
     Route: 055

REACTIONS (3)
  - CHILD NEGLECT [None]
  - MEMORY IMPAIRMENT [None]
  - SUBSTANCE ABUSE [None]
